FAERS Safety Report 16132757 (Version 1)
Quarter: 2019Q1

REPORT INFORMATION
  Report Type: Spontaneous
  Country: None (occurrence: None)
  Receive Date: 20190329
  Receipt Date: 20190329
  Transmission Date: 20190418
  Serious: Yes (Disabling)
  Sender: FDA-Public Use
  Company Number: EU-DSJP-DSJ-2019-110020AA

PATIENT

DRUGS (3)
  1. OFLOXACIN OTIC [Suspect]
     Active Substance: OFLOXACIN
     Dosage: 200 MG, BID
     Route: 048
     Dates: start: 20011019, end: 20011023
  2. SULFAMETHOXAZOLE AND TRIMETHOPRIM [Concomitant]
     Active Substance: SULFAMETHOXAZOLE\TRIMETHOPRIM
     Dosage: UNK
     Route: 065
  3. OFLOXACIN OTIC [Suspect]
     Active Substance: OFLOXACIN
     Indication: PHARYNGITIS
     Dosage: 200 MG (2 TABLETS/DAY)
     Route: 048
     Dates: start: 20011004, end: 20011010

REACTIONS (5)
  - Paraesthesia [Unknown]
  - Tendonitis [Unknown]
  - Musculoskeletal pain [Unknown]
  - Nervous system disorder [Unknown]
  - Neuropathy peripheral [Unknown]

NARRATIVE: CASE EVENT DATE: 20011026
